FAERS Safety Report 4881236-2 (Version None)
Quarter: 2005Q4

REPORT INFORMATION
  Report Type: 
  Country: None (occurrence: None)
  Receive Date: 20051201
  Receipt Date: 20050724
  Transmission Date: 20060501
  Serious: No
  Sender: FDA-Public Use
  Company Number: 2005PV000621

PATIENT
  Age: 60 Year
  Sex: Female
  Weight: 102.0593 kg

DRUGS (13)
  1. BYETTA [Suspect]
     Indication: DIABETES MELLITUS NON-INSULIN-DEPENDENT
     Dosage: SEE IMAGE
     Route: 058
     Dates: start: 20050720, end: 20050821
  2. BYETTA [Suspect]
     Indication: DIABETES MELLITUS NON-INSULIN-DEPENDENT
     Dosage: SEE IMAGE
     Route: 058
     Dates: start: 20050822
  3. DIAZIDE [Concomitant]
  4. COZAAR [Concomitant]
  5. LIPITOR [Concomitant]
  6. FLEXERIL [Concomitant]
  7. HISTA-VENT [Concomitant]
  8. ESCITALOPRAM OXALATE [Concomitant]
  9. PREVACID [Concomitant]
  10. METFORMIN HCL [Concomitant]
  11. DULCOLAX [Concomitant]
  12. OSCAL [Concomitant]
  13. CENTRUM SILVER [Concomitant]

REACTIONS (6)
  - CONSTIPATION [None]
  - DIZZINESS [None]
  - DYSGEUSIA [None]
  - FATIGUE [None]
  - WEIGHT [None]
  - WEIGHT DECREASED [None]
